FAERS Safety Report 5994132-4 (Version None)
Quarter: 2008Q4

REPORT INFORMATION
  Report Type: 
  Country: None (occurrence: None)
  Receive Date: 20081212
  Receipt Date: 20081208
  Transmission Date: 20090506
  Serious: Yes (Death)
  Sender: FDA-Public Use
  Company Number: US-BRISTOL-MYERS SQUIBB COMPANY-14374441

PATIENT
  Age: 78 Year

DRUGS (1)
  1. ABILIFY [Suspect]
     Dosage: TAKING ABILIFY FOR YEARS

REACTIONS (1)
  - PNEUMONIA [None]
